FAERS Safety Report 19467655 (Version 1)
Quarter: 2021Q2

REPORT INFORMATION
  Report Type: Spontaneous
  Country: US (occurrence: US)
  Receive Date: 20210625
  Receipt Date: 20210625
  Transmission Date: 20210717
  Serious: Yes (Hospitalization)
  Sender: FDA-Public Use
  Company Number: None

PATIENT
  Age: 46 Year
  Sex: Female

DRUGS (1)
  1. HUMIRA [Suspect]
     Active Substance: ADALIMUMAB
     Indication: PSORIATIC ARTHROPATHY
     Dosage: FREQUENCY: Q 7 DAYS
     Route: 058
     Dates: start: 20180212

REACTIONS (2)
  - Nasopharyngitis [None]
  - Infection [None]

NARRATIVE: CASE EVENT DATE: 20210624
